FAERS Safety Report 20428134 (Version 1)
Quarter: 2022Q1

REPORT INFORMATION
  Report Type: Spontaneous
  Country: DE (occurrence: DE)
  Receive Date: 20220204
  Receipt Date: 20220204
  Transmission Date: 20220424
  Serious: Yes (Hospitalization, Other)
  Sender: FDA-Public Use
  Company Number: None

PATIENT
  Age: 2 Year
  Sex: Female
  Weight: 15 kg

DRUGS (1)
  1. MONTELUKAST SODIUM [Suspect]
     Active Substance: MONTELUKAST SODIUM
     Indication: Respiratory disorder prophylaxis
     Dosage: 1 SACHET OF 500MG GRANULES CONTAINING 4MG MONTELUKAST, MONTELUKAST-RATIOPHARM 4 MG GRANULAT
     Route: 048
     Dates: start: 20211206, end: 20211207

REACTIONS (11)
  - Epistaxis [Recovered/Resolved]
  - Apnoea [Recovered/Resolved]
  - Muscle twitching [Recovered/Resolved]
  - Nervousness [Recovered/Resolved]
  - Agitation [Recovered/Resolved]
  - Muscle twitching [Recovered/Resolved]
  - Apathy [Recovered/Resolved]
  - Crying [Recovered/Resolved]
  - Irregular breathing [Recovered/Resolved]
  - Muscle spasms [Recovered/Resolved]
  - Staring [Recovered/Resolved]

NARRATIVE: CASE EVENT DATE: 20211206
